FAERS Safety Report 20484393 (Version 2)
Quarter: 2022Q1

REPORT INFORMATION
  Report Type: Spontaneous
  Country: FR (occurrence: FR)
  Receive Date: 20220217
  Receipt Date: 20220328
  Transmission Date: 20220423
  Serious: Yes (Hospitalization, Other)
  Sender: FDA-Public Use
  Company Number: None

PATIENT
  Age: 50 Year
  Sex: Female
  Weight: 64 kg

DRUGS (19)
  1. COMIRNATY [Suspect]
     Active Substance: TOZINAMERAN
     Indication: COVID-19 immunisation
     Dosage: DOSE 3 (BOOSTER), SINGLE
     Route: 030
     Dates: start: 20211124, end: 20211124
  2. COMIRNATY [Suspect]
     Active Substance: TOZINAMERAN
     Dosage: DOSE 2, SINGLE
     Route: 030
     Dates: start: 20210407, end: 20210407
  3. COMIRNATY [Suspect]
     Active Substance: TOZINAMERAN
     Dosage: DOSE 1,SINGLE
     Route: 030
     Dates: start: 20210310, end: 20210310
  4. NOVATREX (METHOTREXATE) [Suspect]
     Active Substance: METHOTREXATE SODIUM
     Indication: Still^s disease
     Dosage: 1 TAB IN THE MORNING 6 DAYS A WEEK (15 MG OVER THE WEEK)
     Route: 048
  5. KINERET [Suspect]
     Active Substance: ANAKINRA
     Indication: Still^s disease
     Dosage: 100 MG, 1X/DAY
     Route: 058
  6. PREDNISONE [Suspect]
     Active Substance: PREDNISONE
     Indication: Still^s disease
     Dosage: 1 MG, 1X/DAY
     Route: 048
  7. BISOPROLOL FUMARATE [Concomitant]
     Active Substance: BISOPROLOL FUMARATE
     Dosage: 1.25 MG, 1X/DAY IN THE MORNING
  8. BRINTELLIX [Concomitant]
     Active Substance: VORTIOXETINE HYDROBROMIDE
     Dosage: 20 MG, 1X/DAY
  9. PANTOPRAZOLE [Concomitant]
     Active Substance: PANTOPRAZOLE
     Dosage: 40 MG, 1X/DAY
  10. NEFOPAM [Concomitant]
     Active Substance: NEFOPAM
     Dosage: 20 MG, 3X/DAY
  11. LEVOTHYROXINE [Concomitant]
     Active Substance: LEVOTHYROXINE
     Dosage: 25 MG, 1X/DAY
  12. IMOVANE [Concomitant]
     Active Substance: ZOPICLONE
     Dosage: 7.5 MG, 1X/DAY IN THE EVENING
  13. POTASSIUM CHLORIDE [Concomitant]
     Active Substance: POTASSIUM CHLORIDE
     Dosage: 600 MG,2X3/DAY
  14. BROMAZEPAM [Concomitant]
     Active Substance: BROMAZEPAM
     Dosage: 3X/DAY, 1/4; 1/4; 1/2
  15. FENOFIBRATE [Concomitant]
     Active Substance: FENOFIBRATE
     Dosage: 145 MG, 1X/DAY
  16. FOLIC ACID [Concomitant]
     Active Substance: FOLIC ACID
     Dosage: 5 MG, WEEKLY, ON SUNDAYS
  17. HYDROCORTISONE [Concomitant]
     Active Substance: HYDROCORTISONE
     Dosage: 2X/DAY, 15 MG IN THE MORNING AND 10 MG AT NOON
  18. CHOLECALCIFEROL [Concomitant]
     Active Substance: CHOLECALCIFEROL
     Dosage: 1 VIAL EVERY 2 MONTHS
  19. DAFALGAN CODEINE [Concomitant]
     Active Substance: ACETAMINOPHEN\CODEINE PHOSPHATE
     Dosage: 4X/DAY

REACTIONS (10)
  - Vaccination failure [Recovering/Resolving]
  - COVID-19 [Recovering/Resolving]
  - Myasthenia gravis [Unknown]
  - Back pain [Unknown]
  - Depression [Unknown]
  - Anxiety [Unknown]
  - Affect lability [Unknown]
  - Crying [Unknown]
  - Constipation [Unknown]
  - Decreased appetite [Unknown]

NARRATIVE: CASE EVENT DATE: 20220108
